FAERS Safety Report 13336665 (Version 1)
Quarter: 2017Q1

REPORT INFORMATION
  Report Type: Spontaneous
  Country: US (occurrence: US)
  Receive Date: 20170314
  Receipt Date: 20170314
  Transmission Date: 20170428
  Serious: No
  Sender: FDA-Public Use
  Company Number: US-JAZZ-2017-US-002160

PATIENT
  Sex: Female

DRUGS (28)
  1. SAPHRIS [Concomitant]
     Active Substance: ASENAPINE MALEATE
  2. NYSTATIN. [Concomitant]
     Active Substance: NYSTATIN
  3. HYDROXYZINE PAM [Concomitant]
     Active Substance: HYDROXYZINE PAMOATE
  4. BENTYL [Concomitant]
     Active Substance: DICYCLOMINE HYDROCHLORIDE
  5. LEVOTHYROXINE. [Concomitant]
     Active Substance: LEVOTHYROXINE
  6. CLOZAPINE. [Concomitant]
     Active Substance: CLOZAPINE
  7. COAL TAR. [Concomitant]
     Active Substance: COAL TAR
  8. XYREM [Suspect]
     Active Substance: SODIUM OXYBATE
     Indication: NARCOLEPSY
     Dosage: 2 G, BID
     Route: 048
     Dates: start: 201510, end: 201510
  9. CYCLOBENZAPRINE                    /00428402/ [Concomitant]
     Active Substance: CYCLOBENZAPRINE
  10. BUSPIRONE HCL [Concomitant]
     Active Substance: BUSPIRONE HYDROCHLORIDE
  11. ADDERALL [Concomitant]
     Active Substance: AMPHETAMINE ASPARTATE\AMPHETAMINE SULFATE\DEXTROAMPHETAMINE SACCHARATE\DEXTROAMPHETAMINE SULFATE
  12. BETAMETHASONE. [Concomitant]
     Active Substance: BETAMETHASONE
  13. IBUPROFEN. [Concomitant]
     Active Substance: IBUPROFEN
  14. VITAMIN D3 [Concomitant]
     Active Substance: CHOLECALCIFEROL
  15. PAXIL [Concomitant]
     Active Substance: PAROXETINE HYDROCHLORIDE
  16. BENZTROPINE MESILATE [Concomitant]
     Active Substance: BENZTROPINE MESYLATE
  17. MAGNESIUM OXIDE. [Concomitant]
     Active Substance: MAGNESIUM OXIDE
  18. XYREM [Suspect]
     Active Substance: SODIUM OXYBATE
     Indication: CATAPLEXY
     Dosage: DOSE ADJUSTMENT
     Route: 048
     Dates: start: 2015, end: 2016
  19. XYREM [Suspect]
     Active Substance: SODIUM OXYBATE
     Dosage: 2.25 G, BID
     Route: 048
     Dates: start: 201609
  20. CLONAZEPAM. [Concomitant]
     Active Substance: CLONAZEPAM
  21. GABAPENTIN. [Concomitant]
     Active Substance: GABAPENTIN
  22. INVEGA [Concomitant]
     Active Substance: PALIPERIDONE
  23. LATUDA [Concomitant]
     Active Substance: LURASIDONE HYDROCHLORIDE
  24. SILVADENE [Concomitant]
     Active Substance: SILVER SULFADIAZINE
  25. PROPRANOLOL [Concomitant]
     Active Substance: PROPRANOLOL HYDROCHLORIDE
  26. PREVIDENT [Concomitant]
     Active Substance: SODIUM FLUORIDE
  27. STELARA [Concomitant]
     Active Substance: USTEKINUMAB
  28. EFFEXOR [Concomitant]
     Active Substance: VENLAFAXINE HYDROCHLORIDE

REACTIONS (2)
  - Head injury [Unknown]
  - Fall [Recovered/Resolved]
